FAERS Safety Report 18036230 (Version 1)
Quarter: 2020Q3

REPORT INFORMATION
  Report Type: Spontaneous
  Country: GB (occurrence: GB)
  Receive Date: 20200717
  Receipt Date: 20200717
  Transmission Date: 20201103
  Serious: Yes (Death, Other)
  Sender: FDA-Public Use
  Company Number: GB-SA-2020SA181984

PATIENT

DRUGS (1)
  1. ISATUXIMAB [Suspect]
     Active Substance: ISATUXIMAB
     Indication: PLASMA CELL MYELOMA
     Dosage: UNK, TOTAL 4 DOSES
     Dates: start: 20200409, end: 20200515

REACTIONS (5)
  - Bone marrow infiltration [Unknown]
  - Neutropenia [Unknown]
  - Product dose omission issue [Unknown]
  - Therapy non-responder [Fatal]
  - Plasma cell myeloma [Fatal]
